FAERS Safety Report 7206357-0 (Version None)
Quarter: 2011Q1

REPORT INFORMATION
  Report Type: 
  Country: None (occurrence: None)
  Receive Date: 20110103
  Receipt Date: 20101222
  Transmission Date: 20110831
  Serious: Yes (Other)
  Sender: FDA-Public Use
  Company Number: PHHY2010IT88138

PATIENT
  Sex: Female

DRUGS (3)
  1. ZOMETA [Suspect]
     Indication: METASTASES TO BONE
     Dosage: 4 MG, MONTHLY
     Route: 042
     Dates: start: 20040101, end: 20061231
  2. ALENDRONATE SODIUM [Suspect]
     Indication: METASTASES TO BONE
     Dosage: UNK
     Dates: start: 20040101, end: 20061231
  3. AREDIA [Suspect]
     Indication: METASTASES TO BONE
     Dosage: UNK
     Route: 042
     Dates: start: 20040101, end: 20061231

REACTIONS (1)
  - OSTEONECROSIS OF JAW [None]
